FAERS Safety Report 9056442 (Version 1)
Quarter: 2013Q1

REPORT INFORMATION
  Report Type: Spontaneous
  Country: US (occurrence: US)
  Receive Date: 20130204
  Receipt Date: 20130204
  Transmission Date: 20140127
  Serious: Yes (Hospitalization)
  Sender: FDA-Public Use
  Company Number: US-ALEXION-A201300116

PATIENT
  Age: 24 Year
  Sex: Male

DRUGS (3)
  1. SOLIRIS 300MG [Suspect]
     Indication: HAEMOLYTIC URAEMIC SYNDROME
     Dosage: 900 MG, SINGLE
     Route: 042
  2. SOLIRIS 300MG [Suspect]
     Dosage: 100 MG, QD FOR FOR ~2 WEEKS, THEN QOD FOR 1 WEEK
     Route: 042
  3. SOLIRIS 300MG [Suspect]
     Dosage: 900 MG, QW
     Route: 042

REACTIONS (2)
  - Haemolytic uraemic syndrome [Recovered/Resolved]
  - Condition aggravated [Recovered/Resolved]
